FAERS Safety Report 16571900 (Version 1)
Quarter: 2019Q3

REPORT INFORMATION
  Report Type: Spontaneous
  Country: US (occurrence: US)
  Receive Date: 20190713
  Receipt Date: 20190713
  Transmission Date: 20191004
  Serious: No
  Sender: FDA-Public Use
  Company Number: None

PATIENT
  Age: 59 Year
  Sex: Female
  Weight: 85.5 kg

DRUGS (1)
  1. INVEGA [Suspect]
     Active Substance: PALIPERIDONE
     Indication: MENTAL DISORDER
     Route: 030
     Dates: start: 20190510, end: 20190610

REACTIONS (7)
  - Anxiety [None]
  - Back pain [None]
  - Ear discomfort [None]
  - Dysphagia [None]
  - Tremor [None]
  - Hypothyroidism [None]
  - Nasal congestion [None]

NARRATIVE: CASE EVENT DATE: 20190517
